FAERS Safety Report 16527848 (Version 2)
Quarter: 2019Q3

REPORT INFORMATION
  Report Type: Report from Study
  Country: AT (occurrence: AT)
  Receive Date: 20190703
  Receipt Date: 20190716
  Transmission Date: 20191004
  Serious: Yes (Hospitalization)
  Sender: FDA-Public Use
  Company Number: AT-SEATTLE GENETICS-2019SGN02303

PATIENT

DRUGS (12)
  1. BRENTUXIMAB VEDOTIN-MPI [Suspect]
     Active Substance: BRENTUXIMAB VEDOTIN
     Dosage: 1.8 MILLIGRAM/KILOGRAM
     Route: 065
     Dates: start: 20190618
  2. DEXAMETHASONE. [Suspect]
     Active Substance: DEXAMETHASONE
     Indication: HODGKIN^S DISEASE
     Dosage: 40 MILLIGRAM
     Route: 065
     Dates: start: 20190212
  3. DACARBAZINE. [Suspect]
     Active Substance: DACARBAZINE
     Indication: HODGKIN^S DISEASE
     Dosage: 250 MG/M2, UNK
     Route: 065
     Dates: start: 20190213
  4. ETOPOSIDE. [Suspect]
     Active Substance: ETOPOSIDE
     Indication: HODGKIN^S DISEASE
     Dosage: 100 MG/M2, UNK
     Route: 065
     Dates: start: 20190212
  5. ETOPOSIDE. [Suspect]
     Active Substance: ETOPOSIDE
     Dosage: 100 MG/M2, UNK
     Route: 065
     Dates: start: 20190619
  6. BRENTUXIMAB VEDOTIN-MPI [Suspect]
     Active Substance: BRENTUXIMAB VEDOTIN
     Indication: HODGKIN^S DISEASE
     Dosage: 1.8 MILLIGRAM/KILOGRAM
     Route: 065
     Dates: start: 20190211
  7. DACARBAZINE. [Suspect]
     Active Substance: DACARBAZINE
     Dosage: 250 MG/M2, UNK
     Route: 065
     Dates: start: 20190620
  8. CYCLOPHOSPHAMIDE. [Suspect]
     Active Substance: CYCLOPHOSPHAMIDE
     Dosage: 950 MG/M2, UNK
     Route: 065
     Dates: start: 20190619
  9. DEXAMETHASONE. [Suspect]
     Active Substance: DEXAMETHASONE
     Dosage: 40 MG/M2, UNK
     Route: 065
     Dates: start: 20190619
  10. DOXORUBICIN [Suspect]
     Active Substance: DOXORUBICIN
     Indication: HODGKIN^S DISEASE
     Dosage: 40 MG/M2, UNK
     Route: 065
     Dates: start: 20190212
  11. DOXORUBICIN [Suspect]
     Active Substance: DOXORUBICIN
     Dosage: 40 MG/M2, UNK
     Route: 065
     Dates: start: 20190619
  12. CYCLOPHOSPHAMIDE. [Suspect]
     Active Substance: CYCLOPHOSPHAMIDE
     Indication: HODGKIN^S DISEASE
     Dosage: 950 MG/M2, UNK
     Route: 065
     Dates: start: 20190212

REACTIONS (1)
  - Enterococcal infection [Recovered/Resolved]

NARRATIVE: CASE EVENT DATE: 20190701
